FAERS Safety Report 18009128 (Version 1)
Quarter: 2020Q3

REPORT INFORMATION
  Report Type: Spontaneous
  Country: US (occurrence: US)
  Receive Date: 20200710
  Receipt Date: 20200710
  Transmission Date: 20201103
  Serious: Yes (Other)
  Sender: FDA-Public Use
  Company Number: US-SAOL THERAPEUTICS-2019SAO00286

PATIENT
  Sex: Female

DRUGS (2)
  1. LIORESAL [Suspect]
     Active Substance: BACLOFEN
     Indication: MUSCLE SPASTICITY
     Dosage: 190.1 ?G, \DAY
     Route: 037
     Dates: end: 20181026
  2. LIORESAL [Suspect]
     Active Substance: BACLOFEN
     Dosage: 209.2 ?G, \DAY (10% INCREASE)
     Route: 037
     Dates: start: 20191026

REACTIONS (3)
  - Implant site extravasation [Recovered/Resolved]
  - Device dislocation [Recovered/Resolved]
  - Cerebrospinal fluid leakage [Recovered/Resolved]

NARRATIVE: CASE EVENT DATE: 2015
